FAERS Safety Report 5834091-8 (Version None)
Quarter: 2008Q3

REPORT INFORMATION
  Report Type: 
  Country: None (occurrence: None)
  Receive Date: 20080805
  Receipt Date: 20080730
  Transmission Date: 20090109
  Serious: Yes (Other)
  Sender: FDA-Public Use
  Company Number: US-BRISTOL-MYERS SQUIBB COMPANY-14285670

PATIENT
  Age: 54 Year
  Sex: Female

DRUGS (2)
  1. CYCLOPHOSPHAMIDE [Suspect]
  2. THIOTEPA [Suspect]

REACTIONS (2)
  - GUILLAIN-BARRE SYNDROME [None]
  - VIRAL INFECTION [None]
